FAERS Safety Report 23368548 (Version 1)
Quarter: 2024Q1

REPORT INFORMATION
  Report Type: Spontaneous
  Country: CN (occurrence: CN)
  Receive Date: 20240105
  Receipt Date: 20240105
  Transmission Date: 20240409
  Serious: Yes (Hospitalization, Other)
  Sender: FDA-Public Use
  Company Number: None

PATIENT
  Age: 3 Year
  Sex: Female
  Weight: 14.2 kg

DRUGS (12)
  1. CYCLOPHOSPHAMIDE [Suspect]
     Active Substance: CYCLOPHOSPHAMIDE
     Indication: Brain neoplasm
     Dosage: 0.65 G, ONE TIME IN ONE DAY, DILUTED WITH 26ML OF SODIUM CHLORIDE
     Route: 041
     Dates: start: 20231220, end: 20231222
  2. CYCLOPHOSPHAMIDE [Suspect]
     Active Substance: CYCLOPHOSPHAMIDE
     Indication: Chemotherapy
  3. VINCRISTINE SULFATE [Suspect]
     Active Substance: VINCRISTINE SULFATE
     Indication: Brain neoplasm
     Dosage: 0.97 MG, ONE TIME IN SEVEN DAYS, DILUTED WITH 20 ML OF SODIUM CHLORIDE, AT 18:44
     Route: 042
     Dates: start: 20231220, end: 20231227
  4. VINCRISTINE SULFATE [Suspect]
     Active Substance: VINCRISTINE SULFATE
     Indication: Chemotherapy
  5. MESNA [Suspect]
     Active Substance: MESNA
     Indication: Brain neoplasm
     Dosage: 0.234 G, QD, DILUTED WITH 10 ML OF SODIUM CHLORIDE
     Route: 042
     Dates: start: 20231220, end: 20231222
  6. MESNA [Suspect]
     Active Substance: MESNA
     Indication: Chemotherapy
  7. CISPLATIN [Suspect]
     Active Substance: CISPLATIN
     Indication: Brain neoplasm
     Dosage: 48.7 MG, ONE TIME IN ONE DAY, DILUTED WITH 130 ML OF SODIUM CHLORIDE
     Route: 041
     Dates: start: 20231220, end: 20231220
  8. CISPLATIN [Suspect]
     Active Substance: CISPLATIN
     Indication: Chemotherapy
  9. SODIUM CHLORIDE [Suspect]
     Active Substance: SODIUM CHLORIDE
     Indication: Vehicle solution use
     Dosage: 26 ML, QD, USED TO DILUTE 0.65 G OF CYCLOPHOSPHAMIDE
     Route: 041
     Dates: start: 20231220, end: 20231222
  10. SODIUM CHLORIDE [Suspect]
     Active Substance: SODIUM CHLORIDE
     Indication: Medication dilution
     Dosage: 20 ML, ONE TIME IN SEVEN DAYS, USED TO DILUTE 0.97 MG OF VINCRISTINE, AT 18:44
     Route: 042
     Dates: start: 20231220, end: 20231227
  11. SODIUM CHLORIDE [Suspect]
     Active Substance: SODIUM CHLORIDE
     Dosage: 10 ML, QD, USED TO DILUTE 0.234 G OF MESNA
     Route: 042
     Dates: start: 20231220, end: 20231222
  12. SODIUM CHLORIDE [Suspect]
     Active Substance: SODIUM CHLORIDE
     Dosage: 130 ML, ONE TIME IN ONE DAY, USED TO DILUTE 48.7 MG OF CISPLATIN
     Route: 041
     Dates: start: 20231220, end: 20231220

REACTIONS (3)
  - Brain neoplasm [Unknown]
  - Condition aggravated [Unknown]
  - Full blood count decreased [Not Recovered/Not Resolved]

NARRATIVE: CASE EVENT DATE: 20231226
